FAERS Safety Report 7605919-6 (Version None)
Quarter: 2011Q3

REPORT INFORMATION
  Report Type: 
  Country: None (occurrence: None)
  Receive Date: 20110713
  Receipt Date: 20110704
  Transmission Date: 20111222
  Serious: Yes (Hospitalization, Other)
  Sender: FDA-Public Use
  Company Number: FR-ASTRAZENECA-2011SE29528

PATIENT
  Age: 83 Year
  Sex: Female
  Weight: 51 kg

DRUGS (13)
  1. SPIRIVA [Concomitant]
  2. LASIX [Concomitant]
  3. ASPIRIN [Concomitant]
  4. POTASSIUM CHLORIDE [Concomitant]
  5. PANTOPRAZOLE [Concomitant]
  6. LEVEMIR [Concomitant]
  7. SYMBICORT [Suspect]
     Route: 055
  8. ATORVASTATIN CALCIUM [Concomitant]
  9. PROCORALAN [Concomitant]
     Indication: ANXIETY
  10. VENTOLIN [Concomitant]
     Indication: CHRONIC OBSTRUCTIVE PULMONARY DISEASE
  11. SYMBICORT [Suspect]
     Indication: CHRONIC OBSTRUCTIVE PULMONARY DISEASE
     Dosage: 320/9 UG PER DOSE 1 INHALATION TWICE DAILY
     Route: 055
  12. ATARAX [Concomitant]
  13. VENTOLIN [Concomitant]
     Dosage: UNKNKOWN DOSE AS REQUIRED

REACTIONS (2)
  - ELECTROCARDIOGRAM QT PROLONGED [None]
  - OVERDOSE [None]
